FAERS Safety Report 16778000 (Version 1)
Quarter: 2019Q3

REPORT INFORMATION
  Report Type: Spontaneous
  Country: US (occurrence: US)
  Receive Date: 20190905
  Receipt Date: 20190905
  Transmission Date: 20191005
  Serious: No
  Sender: FDA-Public Use
  Company Number: US-TEVA-2019-US-1103386

PATIENT
  Age: 65 Year
  Sex: Female

DRUGS (3)
  1. CETIRIZINE W/PSEUDOEPHEDRINE PROLONGED RELEASE TABLET [Suspect]
     Active Substance: CETIRIZINE HYDROCHLORIDE\PSEUDOEPHEDRINE HYDROCHLORIDE
     Indication: PRURITUS
     Dosage: 1 TABLET, EVERY MORNING
     Route: 048
     Dates: start: 2017, end: 20190823
  2. SYNTHROID [Concomitant]
     Active Substance: LEVOTHYROXINE SODIUM
     Route: 065
  3. CETIRIZINE W/PSEUDOEPHEDRINE PROLONGED RELEASE TABLET [Suspect]
     Active Substance: CETIRIZINE HYDROCHLORIDE\PSEUDOEPHEDRINE HYDROCHLORIDE
     Indication: PERENNIAL ALLERGY
     Dosage: 1 TABLET, EVERY MORNING
     Route: 048
     Dates: start: 20190828, end: 20190828

REACTIONS (4)
  - Pruritus [Recovering/Resolving]
  - Off label use [Unknown]
  - Product administered to patient of inappropriate age [Unknown]
  - Incorrect product administration duration [Unknown]
